FAERS Safety Report 26008634 (Version 1)
Quarter: 2025Q4

REPORT INFORMATION
  Report Type: Spontaneous
  Country: US (occurrence: US)
  Receive Date: 20251106
  Receipt Date: 20251106
  Transmission Date: 20260118
  Serious: No
  Sender: BIOGEN
  Company Number: US-BIOGEN-2087949

PATIENT
  Sex: Female
  Weight: 122.47 kg

DRUGS (11)
  1. TECFIDERA [Suspect]
     Active Substance: DIMETHYL FUMARATE
     Indication: Multiple sclerosis
  2. ZOLMitriptan Ocar [Concomitant]
     Indication: Product used for unknown indication
     Dosage: TAKE 1 TABLET ONCE A DAY AS NEEDED FOR 30 DAY(S) ?REFILLS. 2 ?RX QUANTITY: 12
  3. Lidocaine External Patch 5 % [Concomitant]
     Indication: Product used for unknown indication
     Dosage: TAKE 1 TRANSDERMAL PATCH ONCE A DAY AS NEEDED FOR 30 DAY(S) ?REFILLS: 3 ?RX QUANTITY: 30
  4. TOPIRAMATE [Concomitant]
     Active Substance: TOPIRAMATE
     Indication: Product used for unknown indication
     Dosage: ORAL TABLET 50 MG?TAKE 1 TABEET TWICE A DAY FOR 30 DAY(S) ?REFILES: 2 ?RX QUANTITY: 60
  5. Nortriptyline HCI [Concomitant]
     Indication: Product used for unknown indication
     Dosage: ORAL CAPSULE 50 MG ?TAKE 1 CAPSULE EVERY EVENING FOR 30 DAY(S) ?REFILS. 2 ?RX QUANTITY: 30
  6. CYCLOBENZAPRINE HYDROCHLORIDE [Concomitant]
     Active Substance: CYCLOBENZAPRINE HYDROCHLORIDE
     Indication: Product used for unknown indication
     Dosage: ORAL TABLET 10 MG ?TAKE 2-3 TABLETS EVERY EVENING AS NEEDED FOR 90 DAY(S) ?REFILLS. NO REFILLS ?RX QUANTITY: 270
  7. NORA BE [Concomitant]
     Active Substance: NORETHINDRONE
     Indication: Product used for unknown indication
     Dosage: ORAL TABLET 0.35 MG ?TAKE 1 - SELECT - ONCE A DAY ?REFILLS: NO REFILLS
  8. UBRELVY [Concomitant]
     Active Substance: UBROGEPANT
     Indication: Product used for unknown indication
  9. PHENTERMINE [Concomitant]
     Active Substance: PHENTERMINE
     Indication: Multiple sclerosis
     Dosage: 15 MG, QAM, PRN
  10. SUMATRIPTAN SUCCINATE [Concomitant]
     Active Substance: SUMATRIPTAN SUCCINATE
     Indication: Product used for unknown indication
     Dosage: 6 MG/0.5ML
  11. NORA BE [Concomitant]
     Active Substance: NORETHINDRONE
     Indication: Product used for unknown indication
     Dosage: NO REFILS
     Dates: start: 20250522

REACTIONS (1)
  - Multiple sclerosis [Unknown]
